FAERS Safety Report 7375304-3 (Version None)
Quarter: 2011Q1

REPORT INFORMATION
  Report Type: 
  Country: None (occurrence: None)
  Receive Date: 20110325
  Receipt Date: 20100430
  Transmission Date: 20110831
  Serious: Yes (Hospitalization, Other)
  Sender: FDA-Public Use
  Company Number: US-BAYER-200938761NA

PATIENT
  Sex: Female
  Weight: 65 kg

DRUGS (2)
  1. YAZ [Suspect]
  2. YASMIN [Suspect]
     Dates: start: 20070801, end: 20080401

REACTIONS (5)
  - INJURY [None]
  - CHEST PAIN [None]
  - PULMONARY EMBOLISM [None]
  - DYSPNOEA [None]
  - ARTHRALGIA [None]
